FAERS Safety Report 9479314 (Version 1)
Quarter: 2013Q3

REPORT INFORMATION
  Report Type: Report from Study
  Country: US (occurrence: US)
  Receive Date: 20130827
  Receipt Date: 20130827
  Transmission Date: 20140515
  Serious: Yes (Death, Hospitalization, Other)
  Sender: FDA-Public Use
  Company Number: US-TEVA-427789USA

PATIENT
  Age: 75 Year
  Sex: Male
  Weight: 88 kg

DRUGS (2)
  1. DAUNORUBICIN [Suspect]
     Indication: ACUTE MYELOID LEUKAEMIA
     Dosage: 60MG/M2/DAY X3DAYS
     Route: 042
     Dates: start: 20130702, end: 20130704
  2. CYTARABINE [Suspect]
     Indication: ACUTE MYELOID LEUKAEMIA
     Dosage: 100MG/M2/DAY IV X 7 DAYS
     Route: 042
     Dates: end: 20130709

REACTIONS (9)
  - Cholecystitis [Unknown]
  - Haemodynamic instability [Unknown]
  - Acute respiratory failure [Unknown]
  - Septic shock [Unknown]
  - Confusional state [Unknown]
  - Depressed level of consciousness [Unknown]
  - Obstructive airways disorder [Unknown]
  - Pneumonia [Fatal]
  - Multi-organ failure [Fatal]
